FAERS Safety Report 9345975 (Version 1)
Quarter: 2013Q2

REPORT INFORMATION
  Report Type: Spontaneous
  Country: CN (occurrence: CN)
  Receive Date: 20130613
  Receipt Date: 20130613
  Transmission Date: 20140414
  Serious: Yes (Other)
  Sender: FDA-Public Use
  Company Number: CN-ASTELLAS-2013JP006590

PATIENT
  Age: 21 Year
  Sex: Female

DRUGS (4)
  1. PROGRAF [Suspect]
     Indication: RENAL TRANSPLANT
     Dosage: 3 MG, UID/QD
     Route: 048
     Dates: start: 2013
  2. PROGRAF [Suspect]
     Dosage: 5 MG, UID/QD
     Route: 048
     Dates: start: 2013, end: 2013
  3. MYCOPHENOLATE MOFETIL [Concomitant]
     Indication: RENAL TRANSPLANT
     Route: 048
  4. HORMONES [Concomitant]
     Indication: RENAL TRANSPLANT
     Route: 065

REACTIONS (6)
  - Drug ineffective [Unknown]
  - Transplant rejection [Unknown]
  - Blood creatinine increased [Unknown]
  - Blood pressure increased [Unknown]
  - Kidney enlargement [Unknown]
  - Tremor [Unknown]
